FAERS Safety Report 13377791 (Version 5)
Quarter: 2017Q2

REPORT INFORMATION
  Report Type: Report from Study
  Country: US (occurrence: US)
  Receive Date: 20170328
  Receipt Date: 20170619
  Transmission Date: 20170830
  Serious: Yes (Other)
  Sender: FDA-Public Use
  Company Number: US-BRISTOL-MYERS SQUIBB COMPANY-BMS-2016-110870

PATIENT
  Sex: Male

DRUGS (1)
  1. NIVOLUMAB [Suspect]
     Active Substance: NIVOLUMAB
     Indication: LUNG NEOPLASM MALIGNANT
     Dosage: UNK
     Route: 042

REACTIONS (21)
  - Somnolence [Unknown]
  - Device occlusion [Unknown]
  - Dental caries [Unknown]
  - Diarrhoea [Unknown]
  - Dyspnoea [Unknown]
  - Chest pain [Unknown]
  - Wheezing [Unknown]
  - Dizziness [Unknown]
  - Cough [Unknown]
  - Decreased appetite [Unknown]
  - Pericardial effusion [Unknown]
  - Feeling abnormal [Unknown]
  - Fatigue [Unknown]
  - Asthenia [Unknown]
  - Hypoaesthesia [Unknown]
  - Feeling cold [Unknown]
  - Abdominal pain upper [Unknown]
  - Vertigo [Unknown]
  - Oxygen saturation decreased [Unknown]
  - Hepatic function abnormal [Unknown]
  - Pain in extremity [Unknown]
